FAERS Safety Report 9697919 (Version 1)
Quarter: 2013Q4

REPORT INFORMATION
  Report Type: Spontaneous
  Country: US (occurrence: US)
  Receive Date: 20131120
  Receipt Date: 20131120
  Transmission Date: 20140711
  Serious: No
  Sender: FDA-Public Use
  Company Number: US-B.I. PHARMACEUTICALS,INC./RIDGEFIELD-2013-BI-36674BP

PATIENT
  Age: 82 Year
  Sex: Female
  Weight: 68 kg

DRUGS (7)
  1. COMBIVENT [Suspect]
     Indication: BRONCHITIS
     Dosage: STRENGTH: 20 MCG / 100 MCG; DAILY DOSE: 160 MCG/ 800 MCG
     Route: 055
     Dates: start: 20131104
  2. ATENOLOL [Concomitant]
     Indication: HYPERTENSION
     Dosage: 25 MG
     Route: 048
  3. SIMVASTATIN [Concomitant]
     Indication: BLOOD CHOLESTEROL INCREASED
     Dosage: 25 MG
     Route: 048
  4. VITAMIN D [Concomitant]
     Route: 048
  5. LAMICTAL [Concomitant]
     Indication: CONVULSION
     Dosage: 200 MG
     Route: 048
  6. NIFEDIPINE [Concomitant]
     Indication: HYPERTENSION
     Dosage: 30 MG
     Route: 048
  7. COZAAR [Concomitant]
     Indication: HYPERTENSION
     Dosage: 15 MG
     Route: 048

REACTIONS (3)
  - Dizziness [Recovered/Resolved]
  - Prescribed overdose [Not Recovered/Not Resolved]
  - Off label use [Unknown]
